FAERS Safety Report 12555196 (Version 3)
Quarter: 2016Q3

REPORT INFORMATION
  Report Type: Spontaneous
  Country: US (occurrence: US)
  Receive Date: 20160714
  Receipt Date: 20160905
  Transmission Date: 20161109
  Serious: Yes (Hospitalization, Other)
  Sender: FDA-Public Use
  Company Number: US-009507513-1607USA005633

PATIENT
  Sex: Male

DRUGS (1)
  1. KEYTRUDA [Suspect]
     Active Substance: PEMBROLIZUMAB
     Indication: METASTATIC MALIGNANT MELANOMA
     Dosage: THE PATIENT RECEIVED ONLY ONE DOSE.
     Dates: start: 20160629, end: 20160729

REACTIONS (5)
  - Headache [Unknown]
  - Guillain-Barre syndrome [Not Recovered/Not Resolved]
  - Back pain [Unknown]
  - Hyponatraemia [Recovered/Resolved]
  - Visual acuity reduced [Unknown]

NARRATIVE: CASE EVENT DATE: 201607
